FAERS Safety Report 20432914 (Version 1)
Quarter: 2022Q1

REPORT INFORMATION
  Report Type: Spontaneous
  Country: US (occurrence: US)
  Receive Date: 20220205
  Receipt Date: 20220205
  Transmission Date: 20220423
  Serious: No
  Sender: FDA-Public Use
  Company Number: US-SA-SAC20220131001061

PATIENT
  Age: 15 Year
  Sex: Female

DRUGS (1)
  1. DUPIXENT [Suspect]
     Active Substance: DUPILUMAB
     Indication: Dermatitis atopic
     Dosage: 300 MG, QOW
     Route: 058
     Dates: start: 20211020

REACTIONS (4)
  - Stress [Recovered/Resolved]
  - Dermatitis atopic [Recovered/Resolved]
  - Therapeutic response shortened [Unknown]
  - Product use issue [Unknown]

NARRATIVE: CASE EVENT DATE: 20211020
